FAERS Safety Report 15946983 (Version 1)
Quarter: 2019Q1

REPORT INFORMATION
  Report Type: Spontaneous
  Country: US (occurrence: US)
  Receive Date: 20190121
  Receipt Date: 20190121
  Transmission Date: 20190417
  Serious: No
  Sender: FDA-Public Use
  Company Number: None

PATIENT
  Age: 51 Year
  Sex: Male

DRUGS (1)
  1. TARGRETIN [Suspect]
     Active Substance: BEXAROTENE
     Dates: start: 20090101

REACTIONS (5)
  - Product dose omission [None]
  - Dermatitis [None]
  - Erythema [None]
  - Skin irritation [None]
  - Insurance issue [None]

NARRATIVE: CASE EVENT DATE: 20181222
